FAERS Safety Report 7767151 (Version 4)
Quarter: 2013Q1

REPORT INFORMATION
  Report Type: Spontaneous
  Country: US (occurrence: US)
  Receive Date: 20110120
  Receipt Date: 20130109
  Transmission Date: 20140127
  Serious: Yes (Hospitalization, Other)
  Sender: FDA-Public Use
  Company Number: PHHY2011US03704

PATIENT
  Age: 43 Year
  Sex: Male

DRUGS (10)
  1. GILENYA [Suspect]
     Indication: MULTIPLE SCLEROSIS
     Dosage: 0.5 MG, QD
     Route: 048
     Dates: start: 20101210
  2. SYMMETREL [Concomitant]
     Dosage: 100 MG, BID
  3. LEXAPRO [Concomitant]
     Dosage: 10 MG, QD
  4. FAMPRIDINE [Concomitant]
     Dosage: 10 MG, BID
  5. BACTROBAN /NET/ [Concomitant]
     Dosage: UNK UKN, QD
  6. VITAMIN D [Concomitant]
     Dosage: 4000 U, QD
  7. VITAMIN B12 [Concomitant]
     Dosage: 500 UG, QD
  8. FEOSOL [Concomitant]
     Dosage: 1 DF, BID
  9. LOVENOX [Concomitant]
     Dosage: 40 MG, QD
  10. BACLOFEN [Concomitant]
     Dosage: 10 MG, BID

REACTIONS (13)
  - Urinary tract infection [Recovered/Resolved]
  - Pyrexia [Recovering/Resolving]
  - Multiple sclerosis relapse [Recovering/Resolving]
  - Muscular weakness [Recovering/Resolving]
  - Dysarthria [Recovering/Resolving]
  - Hypertonia [Recovering/Resolving]
  - Ataxia [Recovering/Resolving]
  - Hepatic enzyme increased [Recovering/Resolving]
  - Gallbladder polyp [Recovering/Resolving]
  - White blood cell count increased [Recovering/Resolving]
  - Neutrophil count increased [Recovering/Resolving]
  - Red cell distribution width increased [Recovering/Resolving]
  - Mean platelet volume decreased [Recovering/Resolving]
